FAERS Safety Report 4334121-9 (Version None)
Quarter: 2004Q2

REPORT INFORMATION
  Report Type: 
  Country: None (occurrence: None)
  Receive Date: 20040405
  Receipt Date: 20040326
  Transmission Date: 20050107
  Serious: Yes (Hospitalization)
  Sender: FDA-Public Use
  Company Number: DSA_24110_2004

PATIENT
  Age: 43 Year
  Sex: Female

DRUGS (10)
  1. ATIVAN [Suspect]
     Indication: PSYCHOTIC DISORDER
     Dosage: 2 MG
     Dates: start: 19991103, end: 19991103
  2. ATIVAN [Suspect]
     Dosage: 2 MG
     Dates: start: 20000301, end: 20000301
  3. TEMAZEPAM [Suspect]
  4. DILANTIN [Concomitant]
  5. PHENOBARBITAL TAB [Concomitant]
  6. TOPAMAX [Concomitant]
  7. PAXIL [Concomitant]
  8. BAYCOL [Concomitant]
  9. HYDROCHLOROTHIAZIDE [Concomitant]
  10. MIDRIN [Concomitant]

REACTIONS (7)
  - AGGRESSION [None]
  - AMNESIA [None]
  - CEREBROVASCULAR ACCIDENT [None]
  - CONVULSION [None]
  - HALLUCINATION [None]
  - OVERDOSE [None]
  - PSYCHOTIC DISORDER [None]
